FAERS Safety Report 6845876-3 (Version None)
Quarter: 2010Q3

REPORT INFORMATION
  Report Type: 
  Country: None (occurrence: None)
  Receive Date: 20100712
  Receipt Date: 20100601
  Transmission Date: 20110219
  Serious: Yes (Hospitalization)
  Sender: FDA-Public Use
  Company Number: DSA_43451_2010

PATIENT
  Age: 17 Year
  Sex: Male

DRUGS (2)
  1. WELLBUTRIN XL [Suspect]
     Indication: BIPOLAR DISORDER
     Dosage: 3000 MG 1X, NOT THE PRESCRIBED AMOUNT ORAL, 150 MG QD ORAL
     Route: 048
  2. LAMICTAL [Concomitant]

REACTIONS (6)
  - BLOOD POTASSIUM ABNORMAL [None]
  - BUNDLE BRANCH BLOCK RIGHT [None]
  - ELECTROCARDIOGRAM QT PROLONGED [None]
  - GRAND MAL CONVULSION [None]
  - OVERDOSE [None]
  - SINUS TACHYCARDIA [None]
